FAERS Safety Report 7890401-1 (Version None)
Quarter: 2011Q4

REPORT INFORMATION
  Report Type: 
  Country: None (occurrence: None)
  Receive Date: 20111103
  Receipt Date: 20110720
  Transmission Date: 20120403
  Serious: No
  Sender: FDA-Public Use
  Company Number: US-AMGEN-USASP2011004014

PATIENT
  Age: 62 Year
  Sex: Male

DRUGS (2)
  1. ENBREL [Suspect]
     Indication: PSORIATIC ARTHROPATHY
     Dosage: 50 MG, QWK
     Dates: start: 20100801
  2. ENBREL [Suspect]

REACTIONS (4)
  - INJECTION SITE VESICLES [None]
  - INJECTION SITE MASS [None]
  - INJECTION SITE INDURATION [None]
  - INJECTION SITE PAIN [None]
